FAERS Safety Report 17745029 (Version 1)
Quarter: 2020Q2

REPORT INFORMATION
  Report Type: Spontaneous
  Country: US (occurrence: US)
  Receive Date: 20200504
  Receipt Date: 20200504
  Transmission Date: 20200714
  Serious: No
  Sender: FDA-Public Use
  Company Number: None

PATIENT
  Age: 64 Year
  Sex: Female
  Weight: 109.6 kg

DRUGS (1)
  1. DOCETAXEL 160MG/16ML [Suspect]
     Active Substance: DOCETAXEL
     Indication: BREAST CANCER
     Dosage: ?          OTHER DOSE:75MG/M2;OTHER FREQUENCY:EVERY 21 DAYS;?
     Route: 042
     Dates: start: 20200430, end: 20200430

REACTIONS (4)
  - Cough [None]
  - Blood pressure increased [None]
  - Dyspnoea [None]
  - Hyperhidrosis [None]

NARRATIVE: CASE EVENT DATE: 20200430
